FAERS Safety Report 9804674 (Version 2)
Quarter: 2014Q1

REPORT INFORMATION
  Report Type: Spontaneous
  Country: FR (occurrence: FR)
  Receive Date: 20140108
  Receipt Date: 20140110
  Transmission Date: 20141002
  Serious: Yes (Death, Other)
  Sender: FDA-Public Use
  Company Number: FR-PFIZER INC-2014001266

PATIENT
  Age: 86 Year
  Sex: Female

DRUGS (11)
  1. LEVOFLOXACIN [Suspect]
     Dosage: 500 MG DAILY
     Route: 048
     Dates: start: 20131121, end: 20131130
  2. CORDARONE [Suspect]
     Dosage: 200 MILLIGRAM(S);DAILY
     Route: 048
     Dates: start: 20131128
  3. CORDARONE [Suspect]
     Dosage: 100 MILLIGRAM(S);DAILY
     Route: 048
     Dates: end: 20131210
  4. KARDEGIC [Suspect]
     Indication: MYOCARDIAL ISCHAEMIA
     Dosage: 160 MILLIGRAM(S);DAILY
     Route: 048
     Dates: start: 201311, end: 20131130
  5. COUMADINE [Suspect]
     Indication: ATRIAL FIBRILLATION
     Dosage: 3 MILLIGRAM(S);DAILY
     Route: 048
     Dates: start: 20131128, end: 20131205
  6. CALCIPARINE [Concomitant]
     Dosage: 3 INJ / DAY
     Dates: start: 201311, end: 20131130
  7. LASILIX [Concomitant]
     Dosage: 60 MG, 1X/DAY
     Route: 042
     Dates: start: 201311
  8. BISOPROLOL [Concomitant]
     Dosage: 1.25 MG, 2X/DAY
     Dates: start: 20131128
  9. EUPANTOL [Concomitant]
     Dosage: 20 MG, 1X/DAY
     Dates: start: 20131128, end: 20131129
  10. DIFFU K [Concomitant]
     Dosage: 2/DAY
     Dates: start: 20131128
  11. OMEPRAZOLE [Concomitant]
     Dosage: 20 MG, UNK
     Dates: start: 20131129

REACTIONS (3)
  - Gastrointestinal haemorrhage [Fatal]
  - Melaena [Unknown]
  - Asthenia [Unknown]
